FAERS Safety Report 8722629 (Version 2)
Quarter: 2012Q4

REPORT INFORMATION
  Report Type: 
  Country: US (occurrence: US)
  Receive Date: 20120814
  Receipt Date: 20121018
  Transmission Date: 20130627
  Serious: Yes (Hospitalization)
  Sender: FDA-Public Use
  Company Number: US-BAYER-2012-080593

PATIENT
  Age: 50 Year
  Sex: Female
  Weight: 114.74 kg

DRUGS (2)
  1. MIRENA [Suspect]
     Indication: CONTRACEPTION
     Dosage: 20 ?g, UNK
     Route: 015
     Dates: start: 200901
  2. ADIPEX [Concomitant]
     Indication: WEIGHT DECREASED

REACTIONS (2)
  - Knee arthroplasty [None]
  - Weight decreased [None]
